FAERS Safety Report 21397860 (Version 3)
Quarter: 2023Q1

REPORT INFORMATION
  Report Type: Report from Study
  Country: US (occurrence: US)
  Receive Date: 20220930
  Receipt Date: 20230113
  Transmission Date: 20230417
  Serious: No
  Sender: FDA-Public Use
  Company Number: US-ABBVIE-4132551

PATIENT
  Age: 29 Year
  Sex: Male

DRUGS (4)
  1. SKYRIZI [Suspect]
     Active Substance: RISANKIZUMAB-RZAA
     Indication: Psoriasis
     Route: 058
     Dates: start: 202205
  2. SKYRIZI [Suspect]
     Active Substance: RISANKIZUMAB-RZAA
     Route: 058
     Dates: start: 20220509
  3. MODERNA COVID-19 VACCINE [Concomitant]
     Active Substance: ELASOMERAN
     Indication: COVID-19 immunisation
     Dosage: ONE IN ONCE , 1ST DOSE
     Route: 030
     Dates: start: 202104, end: 202104
  4. MODERNA COVID-19 VACCINE [Concomitant]
     Active Substance: ELASOMERAN
     Indication: COVID-19 immunisation
     Dosage: ONE IN ONCE , 2ND DOSE
     Route: 030
     Dates: start: 20210504, end: 20210504

REACTIONS (9)
  - Cough [Recovering/Resolving]
  - Sneezing [Not Recovered/Not Resolved]
  - Sinus congestion [Recovered/Resolved]
  - Nasal congestion [Recovering/Resolving]
  - Sneezing [Recovering/Resolving]
  - Allergic cough [Not Recovered/Not Resolved]
  - Illness [Not Recovered/Not Resolved]
  - SARS-CoV-2 test positive [Unknown]
  - Feeling abnormal [Unknown]

NARRATIVE: CASE EVENT DATE: 20220901
